FAERS Safety Report 5410839-1 (Version None)
Quarter: 2007Q3

REPORT INFORMATION
  Report Type: 
  Country: None (occurrence: None)
  Receive Date: 20070810
  Receipt Date: 20070730
  Transmission Date: 20080115
  Serious: Yes (Other)
  Sender: FDA-Public Use
  Company Number: PHMT2007CA01271

PATIENT
  Age: 59 Year
  Sex: Female
  Weight: 64 kg

DRUGS (6)
  1. CLOZARIL [Suspect]
     Indication: SCHIZOAFFECTIVE DISORDER
     Dosage: 500 MG
     Route: 048
     Dates: start: 20011130
  2. CLOZARIL [Suspect]
     Dosage: 475 MG HS
     Route: 048
  3. LAMOTRIGINE [Concomitant]
     Dosage: 200 HS
     Dates: start: 20020405
  4. CIPRO [Concomitant]
     Dosage: 500
     Dates: start: 20070320, end: 20070327
  5. RAMIPRIL [Concomitant]
     Dosage: 5MG DAILY
     Dates: start: 20070320, end: 20070328
  6. DYAZIDE [Concomitant]
     Dates: start: 20070324, end: 20070328

REACTIONS (12)
  - ANTIPSYCHOTIC DRUG LEVEL INCREASED [None]
  - APPENDICECTOMY [None]
  - BLOOD BICARBONATE INCREASED [None]
  - BLOOD CHLORIDE INCREASED [None]
  - BLOOD CREATININE INCREASED [None]
  - BLOOD POTASSIUM DECREASED [None]
  - BLOOD SODIUM DECREASED [None]
  - GLOMERULAR FILTRATION RATE DECREASED [None]
  - HYSTERECTOMY [None]
  - SALPINGO-OOPHORECTOMY BILATERAL [None]
  - SEDATION [None]
  - URINARY BLADDER EXCISION [None]
